FAERS Safety Report 7989488-7 (Version None)
Quarter: 2011Q4

REPORT INFORMATION
  Report Type: 
  Country: None (occurrence: None)
  Receive Date: 20111219
  Receipt Date: 20111213
  Transmission Date: 20120403
  Serious: Yes (Death)
  Sender: FDA-Public Use
  Company Number: US-ASTELLAS-2011US008436

PATIENT
  Sex: Male
  Weight: 79 kg

DRUGS (1)
  1. PROGRAF [Suspect]
     Indication: LIVER TRANSPLANT
     Dosage: 1 MG IN THE MORNING, 0.5 MG IN THE EVENING
     Route: 065
     Dates: start: 19950301, end: 20111212

REACTIONS (1)
  - DEATH [None]
